FAERS Safety Report 9277054 (Version 1)
Quarter: 2013Q2

REPORT INFORMATION
  Report Type: Spontaneous
  Country: ES (occurrence: ES)
  Receive Date: 20130507
  Receipt Date: 20130507
  Transmission Date: 20140414
  Serious: Yes (Hospitalization)
  Sender: FDA-Public Use
  Company Number: ES-BAXTER-2013BAX016142

PATIENT
  Age: 13 Year
  Sex: Female
  Weight: 44 kg

DRUGS (7)
  1. GENOXAL 1 G INYECTABLE [Suspect]
     Indication: NON-HODGKIN^S LYMPHOMA
     Route: 042
     Dates: start: 20120916, end: 20120917
  2. TEPADINA [Interacting]
     Indication: NON-HODGKIN^S LYMPHOMA
     Route: 042
     Dates: start: 20120914, end: 20120915
  3. ACICLOVIR [Concomitant]
     Indication: PROPHYLAXIS
     Route: 042
     Dates: start: 20120919
  4. ONDANSETRON [Concomitant]
     Indication: PROPHYLAXIS
     Route: 042
     Dates: start: 20120914, end: 20120917
  5. SEPTRIN [Concomitant]
     Indication: ANTIBIOTIC PROPHYLAXIS
     Route: 048
     Dates: start: 20120910, end: 20120919
  6. RANITIDINA [Concomitant]
     Indication: PROPHYLAXIS AGAINST GASTROINTESTINAL ULCER
     Route: 042
     Dates: start: 20120910
  7. PARACETAMOL [Concomitant]
     Indication: PAIN
     Route: 042
     Dates: start: 20120916

REACTIONS (1)
  - Venoocclusive disease [Recovered/Resolved]
